FAERS Safety Report 8514960-0 (Version None)
Quarter: 2012Q3

REPORT INFORMATION
  Report Type: 
  Country: None (occurrence: None)
  Receive Date: 20120717
  Receipt Date: 20120710
  Transmission Date: 20120928
  Serious: Yes (Hospitalization)
  Sender: FDA-Public Use
  Company Number: BR-ASTRAZENECA-2012SE47760

PATIENT
  Age: 59 Year
  Sex: Male

DRUGS (2)
  1. ASPIRIN [Concomitant]
     Route: 048
  2. METOPROLOL SUCCINATE [Suspect]
     Dosage: DAILY
     Route: 048
     Dates: start: 20090101

REACTIONS (1)
  - MYOCARDIAL INFARCTION [None]
